FAERS Safety Report 19166965 (Version 2)
Quarter: 2021Q3

REPORT INFORMATION
  Report Type: Spontaneous
  Country: US (occurrence: US)
  Receive Date: 20210421
  Receipt Date: 20210722
  Transmission Date: 20211014
  Serious: Yes (Other)
  Sender: FDA-Public Use
  Company Number: US-TEVA-2021-US-1903585

PATIENT
  Sex: Female

DRUGS (2)
  1. VALSARTAN HYDROCHLORTHIAZIDE PRINSTON [Suspect]
     Active Substance: HYDROCHLOROTHIAZIDE\VALSARTAN
     Indication: HYPERTENSION
     Dosage: 320?12.5 MG
     Route: 048
     Dates: start: 20170222, end: 20170523
  2. VALSARTAN HYDROCHLORTHIAZIDE AUROBINDO [Suspect]
     Active Substance: HYDROCHLOROTHIAZIDE\VALSARTAN
     Indication: HYPERTENSION
     Dosage: 320?12.5 MG
     Route: 048
     Dates: start: 20140602, end: 20161231

REACTIONS (1)
  - Colorectal cancer [Unknown]
